FAERS Safety Report 11545577 (Version 1)
Quarter: 2015Q3

REPORT INFORMATION
  Report Type: Spontaneous
  Country: FR (occurrence: FR)
  Receive Date: 20150924
  Receipt Date: 20150924
  Transmission Date: 20151125
  Serious: Yes (Other)
  Sender: FDA-Public Use
  Company Number: FR-PFIZER INC-2015132799

PATIENT
  Age: 67 Year
  Sex: Male
  Weight: 70 kg

DRUGS (8)
  1. BOSULIF [Suspect]
     Active Substance: BOSUTINIB MONOHYDRATE
     Dosage: 400 MG, DAILY
     Route: 048
     Dates: start: 201502
  2. AMLODIPINE [Concomitant]
     Active Substance: AMLODIPINE BESYLATE
  3. HYDROCHLOROTHIAZIDE. [Concomitant]
     Active Substance: HYDROCHLOROTHIAZIDE
  4. CANDESARTAN [Concomitant]
     Active Substance: CANDESARTAN
  5. BOSULIF [Suspect]
     Active Substance: BOSUTINIB MONOHYDRATE
     Indication: CHRONIC MYELOID LEUKAEMIA
     Dosage: UNK, PROGRESSIVE DOSE
     Route: 048
     Dates: start: 20141219
  6. BOSULIF [Suspect]
     Active Substance: BOSUTINIB MONOHYDRATE
     Dosage: 500 MG, 1X/DAY
     Route: 048
     Dates: end: 201505
  7. ALLOPURINOL. [Concomitant]
     Active Substance: ALLOPURINOL
  8. OMEPRAZOLE. [Concomitant]
     Active Substance: OMEPRAZOLE

REACTIONS (5)
  - Rash macular [Not Recovered/Not Resolved]
  - Rash papulosquamous [Not Recovered/Not Resolved]
  - Cheilitis [Not Recovered/Not Resolved]
  - Photosensitivity reaction [Recovered/Resolved]
  - Lichenoid keratosis [Not Recovered/Not Resolved]

NARRATIVE: CASE EVENT DATE: 201504
